FAERS Safety Report 11031031 (Version 4)
Quarter: 2015Q4

REPORT INFORMATION
  Report Type: Spontaneous
  Country: US (occurrence: US)
  Receive Date: 20150415
  Receipt Date: 20151021
  Transmission Date: 20160304
  Serious: Yes (Hospitalization, Other)
  Sender: FDA-Public Use
  Company Number: US-BAYER-2015-117583

PATIENT
  Age: 24 Year
  Sex: Female
  Weight: 82.99 kg

DRUGS (12)
  1. DIFLUCAN [Concomitant]
     Active Substance: FLUCONAZOLE
  2. BACTRIM [Concomitant]
     Active Substance: SULFAMETHOXAZOLE\TRIMETHOPRIM
  3. MEDROL [Concomitant]
     Active Substance: METHYLPREDNISOLONE
  4. PREDNISONE. [Concomitant]
     Active Substance: PREDNISONE
  5. VICODIN [Concomitant]
     Active Substance: ACETAMINOPHEN\HYDROCODONE BITARTRATE
  6. FLOVENT [Concomitant]
     Active Substance: FLUTICASONE PROPIONATE
  7. ALBUTEROL. [Concomitant]
     Active Substance: ALBUTEROL
     Indication: ASTHMA
     Dosage: UNK
     Route: 045
     Dates: start: 1995
  8. FLAGYL [Concomitant]
     Active Substance: METRONIDAZOLE\METRONIDAZOLE HYDROCHLORIDE
  9. CIPROFLOXACIN. [Concomitant]
     Active Substance: CIPROFLOXACIN
  10. AMOXICILLIN. [Concomitant]
     Active Substance: AMOXICILLIN
  11. MIRENA [Suspect]
     Active Substance: LEVONORGESTREL
     Indication: CONTRACEPTION
     Dosage: 20 MCG/24HR, CONT
     Route: 015
     Dates: start: 20060627, end: 20120502
  12. MACROBID [Concomitant]
     Active Substance: NITROFURANTOIN\NITROFURANTOIN MONOHYDRATE

REACTIONS (9)
  - Pain [None]
  - Procedural pain [Not Recovered/Not Resolved]
  - Suicidal ideation [None]
  - Injury [None]
  - Device use error [None]
  - Uterine perforation [None]
  - Procedural pain [Not Recovered/Not Resolved]
  - Device issue [None]
  - Scar [None]

NARRATIVE: CASE EVENT DATE: 200809
